FAERS Safety Report 24179288 (Version 3)
Quarter: 2024Q3

REPORT INFORMATION
  Report Type: Spontaneous
  Country: US (occurrence: US)
  Receive Date: 20240806
  Receipt Date: 20240909
  Transmission Date: 20241017
  Serious: No
  Sender: VERTEX
  Company Number: US-VERTEX PHARMACEUTICALS-2024-012580

PATIENT
  Age: 16 Month
  Sex: Male

DRUGS (1)
  1. KALYDECO [Suspect]
     Active Substance: IVACAFTOR
     Indication: Cystic fibrosis
     Dosage: 50 MG (1 PACKET GRANULES), BID
     Route: 048
     Dates: start: 20240613

REACTIONS (1)
  - Giardiasis [Recovered/Resolved]

NARRATIVE: CASE EVENT DATE: 20240802
